FAERS Safety Report 6232338-X (Version None)
Quarter: 2009Q2

REPORT INFORMATION
  Report Type: 
  Country: None (occurrence: None)
  Receive Date: 20090617
  Receipt Date: 20090605
  Transmission Date: 20091009
  Serious: Yes (Hospitalization)
  Sender: FDA-Public Use
  Company Number: DE-WYE-H09195009

PATIENT
  Age: 53 Year
  Sex: Female
  Weight: 51 kg

DRUGS (9)
  1. PANTOPRAZOLE SODIUM [Suspect]
     Dosage: UNKNOWN
  2. TORSEMIDE [Concomitant]
     Dosage: UNKNOWN
  3. ACYCLOVIR [Concomitant]
  4. DAUNORUBICIN HCL [Concomitant]
     Dosage: UNKNOWN
  5. TAVANIC [Concomitant]
  6. L-THYROXIN [Concomitant]
     Dosage: UNKNOWN
  7. AMPHOTERICIN B [Concomitant]
     Dosage: UNKNOWN
  8. CYTARABINE [Suspect]
     Indication: ACUTE MYELOID LEUKAEMIA
     Dosage: 300 MG/M^2 TWICE DAILY ON DAYS 1, 3 AND 5
     Route: 042
     Dates: start: 20090306
  9. NORVASC [Concomitant]

REACTIONS (3)
  - FEBRILE NEUTROPENIA [None]
  - HEADACHE [None]
  - VOMITING [None]
